FAERS Safety Report 6093945-0 (Version None)
Quarter: 2009Q1

REPORT INFORMATION
  Report Type: 
  Country: None (occurrence: None)
  Receive Date: 20090226
  Receipt Date: 20090220
  Transmission Date: 20090719
  Serious: Yes (Death, Hospitalization)
  Sender: FDA-Public Use
  Company Number: A0770308A

PATIENT
  Age: 73 Year
  Sex: Male
  Weight: 136.4 kg

DRUGS (9)
  1. AVANDIA [Suspect]
     Indication: DIABETES MELLITUS
     Dosage: 8MG PER DAY
     Route: 048
     Dates: start: 20020101, end: 20060701
  2. GLUCOPHAGE [Concomitant]
  3. METFORMIN [Concomitant]
  4. GLUCOTROL XL [Concomitant]
  5. LASIX [Concomitant]
  6. LIPITOR [Concomitant]
  7. STOOL SOFTENER [Concomitant]
  8. POTASSIUM CHLORIDE [Concomitant]
  9. MULTI-VITAMIN [Concomitant]

REACTIONS (2)
  - DEATH [None]
  - MYOCARDIAL INFARCTION [None]
